FAERS Safety Report 5731715-0 (Version None)
Quarter: 2008Q2

REPORT INFORMATION
  Report Type: 
  Country: None (occurrence: None)
  Receive Date: 20080506
  Receipt Date: 20080422
  Transmission Date: 20081010
  Serious: Yes (Hospitalization, Other)
  Sender: FDA-Public Use
  Company Number: 233844J08USA

PATIENT
  Age: 64 Year
  Sex: Male

DRUGS (4)
  1. REBIF [Suspect]
     Indication: MULTIPLE SCLEROSIS
     Dosage: 44 MCG, 3 IN 1 WEEKS, SUBCUTANEOUS
     Route: 058
     Dates: start: 20030908
  2. LASIX (FUROSEMIDE /00032601/) [Concomitant]
  3. KEPPRA [Concomitant]
  4. LYRICA [Concomitant]

REACTIONS (4)
  - DEHYDRATION [None]
  - PROSTATOMEGALY [None]
  - THROMBOSIS [None]
  - VOMITING [None]
